FAERS Safety Report 7554872 (Version 27)
Quarter: 2013Q3

REPORT INFORMATION
  Report Type: Spontaneous
  Country: CA (occurrence: CA)
  Receive Date: 20100826
  Receipt Date: 20130719
  Transmission Date: 20140515
  Serious: Yes (Other)
  Sender: FDA-Public Use
  Company Number: CA-ROCHE-GNE305461

PATIENT
  Age: 53 Year
  Sex: Female

DRUGS (9)
  1. XOLAIR [Suspect]
     Indication: ASTHMA
     Route: 058
     Dates: start: 20050722
  2. XOLAIR [Suspect]
     Route: 058
     Dates: start: 20060118
  3. XOLAIR [Suspect]
     Route: 058
     Dates: start: 20110406
  4. XOLAIR [Suspect]
     Route: 058
     Dates: start: 20121114
  5. XOLAIR [Suspect]
     Route: 058
     Dates: start: 20130403
  6. METFORMIN [Concomitant]
     Route: 065
  7. VENTOLIN [Concomitant]
  8. ADVAIR [Concomitant]
  9. FLOVENT [Concomitant]

REACTIONS (22)
  - Diabetes mellitus [Unknown]
  - Asthma [Unknown]
  - Decreased appetite [Unknown]
  - Seasonal allergy [Unknown]
  - Chest discomfort [Unknown]
  - Cough [Recovering/Resolving]
  - Asthma [Recovering/Resolving]
  - Underdose [Unknown]
  - Fatigue [Unknown]
  - Feeling abnormal [Unknown]
  - Chest pain [Unknown]
  - Eczema [Recovering/Resolving]
  - Furuncle [Recovered/Resolved]
  - Weight decreased [Unknown]
  - Eye pruritus [Unknown]
  - Lower respiratory tract infection [Unknown]
  - Weight increased [Unknown]
  - Dyspnoea [Unknown]
  - Nasopharyngitis [Unknown]
  - Heart rate increased [Unknown]
  - Middle ear effusion [Unknown]
  - Respiratory distress [Recovering/Resolving]
